APPROVED DRUG PRODUCT: HALOBETASOL PROPIONATE AND TAZAROTENE
Active Ingredient: HALOBETASOL PROPIONATE; TAZAROTENE
Strength: 0.01%;0.045%
Dosage Form/Route: LOTION;TOPICAL
Application: A217190 | Product #001 | TE Code: AB
Applicant: SUN PHARMA CANADA INC
Approved: May 2, 2025 | RLD: No | RS: No | Type: RX